FAERS Safety Report 14262034 (Version 4)
Quarter: 2018Q1

REPORT INFORMATION
  Report Type: Report from Study
  Country: JP (occurrence: JP)
  Receive Date: 20171208
  Receipt Date: 20180223
  Transmission Date: 20180508
  Serious: Yes (Death, Hospitalization)
  Sender: FDA-Public Use
  Company Number: JP-EISAI MEDICAL RESEARCH-EC-2017-033695

PATIENT
  Age: 39 Year
  Sex: Male
  Weight: 54 kg

DRUGS (7)
  1. RISPERIDONE. [Concomitant]
     Active Substance: RISPERIDONE
  2. HALOPERIDOL. [Concomitant]
     Active Substance: HALOPERIDOL
  3. FYCOMPA [Suspect]
     Active Substance: PERAMPANEL
     Indication: PARTIAL SEIZURES
     Route: 048
     Dates: start: 20171102, end: 20171108
  4. FYCOMPA [Suspect]
     Active Substance: PERAMPANEL
     Route: 048
     Dates: start: 20171116, end: 20171122
  5. E KEPPRA [Concomitant]
     Active Substance: LEVETIRACETAM
  6. FYCOMPA [Suspect]
     Active Substance: PERAMPANEL
     Route: 048
     Dates: start: 20171109, end: 20171115
  7. EXCEGRAN [Concomitant]
     Active Substance: ZONISAMIDE

REACTIONS (2)
  - Completed suicide [Fatal]
  - Aggression [Not Recovered/Not Resolved]

NARRATIVE: CASE EVENT DATE: 20171112
